FAERS Safety Report 22831179 (Version 4)
Quarter: 2024Q2

REPORT INFORMATION
  Report Type: Other
  Country: US (occurrence: None)
  Receive Date: 20230817
  Receipt Date: 20240518
  Transmission Date: 20240715
  Serious: Yes (Hospitalization, Other)
  Sender: FDA-Public Use
  Company Number: US-ROCHE-3392850

PATIENT
  Age: 44 Year
  Sex: Female
  Weight: 90.8 kg

DRUGS (9)
  1. OCREVUS [Suspect]
     Active Substance: OCRELIZUMAB
     Indication: Relapsing-remitting multiple sclerosis
     Dosage: 2 IN 1 YEAR
     Route: 042
     Dates: start: 2019, end: 2021
  2. OCREVUS [Suspect]
     Active Substance: OCRELIZUMAB
     Indication: Primary progressive multiple sclerosis
     Route: 042
     Dates: start: 20231218
  3. BETASERON [Concomitant]
     Active Substance: INTERFERON BETA-1B
  4. BACLOFEN [Concomitant]
     Active Substance: BACLOFEN
  5. METFORMIN [Concomitant]
     Active Substance: METFORMIN HYDROCHLORIDE
  6. FAMOTIDINE [Concomitant]
     Active Substance: FAMOTIDINE
  7. BETHANECHOL [Concomitant]
     Active Substance: BETHANECHOL
  8. COPAXONE [Concomitant]
     Active Substance: GLATIRAMER ACETATE
     Indication: Relapsing-remitting multiple sclerosis
     Dates: start: 2006
  9. BETASERON [Concomitant]
     Active Substance: INTERFERON BETA-1B
     Indication: Relapsing-remitting multiple sclerosis

REACTIONS (21)
  - Fall [Unknown]
  - Maternal exposure before pregnancy [Unknown]
  - Premature delivery [Unknown]
  - Cervix haemorrhage uterine [Recovered/Resolved]
  - Escherichia infection [Recovered/Resolved]
  - Urinary tract infection [Recovered/Resolved]
  - Dysuria [Unknown]
  - Dysarthria [Not Recovered/Not Resolved]
  - Memory impairment [Not Recovered/Not Resolved]
  - Gait disturbance [Not Recovered/Not Resolved]
  - Depression [Unknown]
  - Anxiety [Unknown]
  - Confusional state [Unknown]
  - Cardiac failure [Unknown]
  - Type 2 diabetes mellitus [Not Recovered/Not Resolved]
  - Tooth infection [Unknown]
  - Pulmonary thrombosis [Unknown]
  - Bone disorder [Not Recovered/Not Resolved]
  - Vision blurred [Not Recovered/Not Resolved]
  - Eye irritation [Not Recovered/Not Resolved]
  - Blood cholesterol increased [Not Recovered/Not Resolved]

NARRATIVE: CASE EVENT DATE: 20200701
